FAERS Safety Report 6461626-7 (Version None)
Quarter: 2009Q4

REPORT INFORMATION
  Report Type: 
  Country: None (occurrence: None)
  Receive Date: 20091130
  Receipt Date: 20091119
  Transmission Date: 20100525
  Serious: Yes (Hospitalization)
  Sender: FDA-Public Use
  Company Number: IT-ASTRAZENECA-2009SE27868

PATIENT
  Age: 77 Year
  Sex: Male

DRUGS (5)
  1. SEROQUEL [Suspect]
     Indication: PSYCHOTIC DISORDER
     Route: 048
     Dates: start: 20091030, end: 20091103
  2. CREON [Concomitant]
     Route: 048
     Dates: start: 20091030, end: 20091104
  3. TALOFEN [Concomitant]
     Route: 048
     Dates: start: 20091030, end: 20091104
  4. ZOLOFT [Concomitant]
     Route: 048
     Dates: start: 20091030, end: 20091104
  5. HUMULIN R [Concomitant]
     Dates: start: 20091030, end: 20091104

REACTIONS (2)
  - DROP ATTACKS [None]
  - HYPOTENSION [None]
